FAERS Safety Report 9894460 (Version 1)
Quarter: 2014Q1

REPORT INFORMATION
  Report Type: Spontaneous
  Country: AU (occurrence: AU)
  Receive Date: 20140213
  Receipt Date: 20140213
  Transmission Date: 20141002
  Serious: Yes (Other)
  Sender: FDA-Public Use
  Company Number: AU-PFIZER INC-2014037415

PATIENT
  Age: 14 Year
  Sex: Male

DRUGS (7)
  1. GENOTROPIN [Suspect]
     Indication: GROWTH RETARDATION
     Dosage: UNK
     Dates: start: 200903
  2. GENOTROPIN [Suspect]
     Dosage: 10 MG/WEEK IN DIVIDED DOSES (7.5 MG/M2/WEEK)
     Dates: start: 201202
  3. HUMIRA [Concomitant]
     Dosage: UNK
  4. AZATHIOPRINE [Concomitant]
     Dosage: 75MG/100MG ALTERNATING
  5. SULFASALAZINE [Concomitant]
     Dosage: 1000 MG, 2X/DAY
  6. CALCIUM [Concomitant]
     Dosage: UNK
  7. COLIFOAM [Concomitant]
     Dosage: UNK

REACTIONS (2)
  - Crohn^s disease [Unknown]
  - Drug ineffective for unapproved indication [Unknown]
